FAERS Safety Report 5901626-6 (Version None)
Quarter: 2008Q3

REPORT INFORMATION
  Report Type: 
  Country: None (occurrence: None)
  Receive Date: 20080926
  Receipt Date: 20080926
  Transmission Date: 20090109
  Serious: Yes (Death)
  Sender: FDA-Public Use
  Company Number: None

PATIENT
  Sex: Male
  Weight: 78.0187 kg

DRUGS (1)
  1. AVELOX [Suspect]
     Indication: PNEUMONIA
     Dosage: ONE TABLET DAILY FOR TWO WEEK PO
     Route: 048
     Dates: start: 20080901, end: 20080915

REACTIONS (4)
  - CLOSTRIDIUM DIFFICILE COLITIS [None]
  - HAEMATOCHEZIA [None]
  - MYOCARDIAL INFARCTION [None]
  - PAIN [None]
